FAERS Safety Report 8388752-X (Version None)
Quarter: 2012Q2

REPORT INFORMATION
  Report Type: 
  Country: None (occurrence: None)
  Receive Date: 20120528
  Receipt Date: 20120514
  Transmission Date: 20120825
  Serious: Yes (Other)
  Sender: FDA-Public Use
  Company Number: FR-BRISTOL-MYERS SQUIBB COMPANY-16625063

PATIENT
  Age: 1 Day
  Sex: Female
  Weight: 1 kg

DRUGS (2)
  1. IFOSFAMIDE [Suspect]
     Route: 064
  2. DOXORUBICIN HCL [Suspect]
     Route: 064

REACTIONS (4)
  - PREMATURE BABY [None]
  - ALOPECIA [None]
  - MATERNAL DRUGS AFFECTING FOETUS [None]
  - NEUTROPENIA [None]
